FAERS Safety Report 7314252-1 (Version None)
Quarter: 2011Q1

REPORT INFORMATION
  Report Type: 
  Country: None (occurrence: None)
  Receive Date: 20110225
  Receipt Date: 20100712
  Transmission Date: 20110831
  Serious: No
  Sender: FDA-Public Use
  Company Number: US-MYLANLABS-2010S1011256

PATIENT
  Age: 17 Year
  Sex: Male

DRUGS (4)
  1. NASONEX [Concomitant]
     Dates: start: 20090513
  2. AMNESTEEM [Suspect]
     Dates: start: 20100113, end: 20100621
  3. CLINDAMYCIN PHOSPHATE [Concomitant]
     Dosage: TOPICAL LOTION 1%
     Route: 061
     Dates: start: 20100215
  4. AMNESTEEM [Suspect]
     Indication: ACNE

REACTIONS (1)
  - DEPRESSION [None]
